FAERS Safety Report 10925395 (Version 1)
Quarter: 2015Q1

REPORT INFORMATION
  Report Type: Spontaneous
  Country: US (occurrence: None)
  Receive Date: 20150129
  Receipt Date: 20150129
  Transmission Date: 20150721
  Serious: Yes (Other)
  Sender: FDA-Public Use
  Company Number: 2014009500

PATIENT
  Age: 21 Year
  Sex: Male
  Weight: 108.9 kg

DRUGS (1)
  1. KEPPRA [Suspect]
     Active Substance: LEVETIRACETAM
     Indication: GENERALISED TONIC-CLONIC SEIZURE
     Route: 048
     Dates: start: 201311, end: 2013

REACTIONS (14)
  - Nausea [None]
  - Fatigue [None]
  - Somnolence [None]
  - Partial seizures [None]
  - Nasopharyngitis [None]
  - Generalised tonic-clonic seizure [None]
  - Vomiting [None]
  - Poor quality sleep [None]
  - Hypersomnia [None]
  - Somnambulism [None]
  - Weight decreased [None]
  - Dizziness [None]
  - Drug dose omission [None]
  - Lethargy [None]

NARRATIVE: CASE EVENT DATE: 201311
